FAERS Safety Report 16376935 (Version 1)
Quarter: 2019Q3

REPORT INFORMATION
  Report Type: Spontaneous
  Country: US (occurrence: US)
  Receive Date: 20190530
  Receipt Date: 20190530
  Transmission Date: 20191004
  Serious: Yes (Life-Threatening, Hospitalization)
  Sender: FDA-Public Use
  Company Number: None

PATIENT
  Age: 54 Year
  Sex: Female
  Weight: 68 kg

DRUGS (2)
  1. DOCETAXEL. [Concomitant]
     Active Substance: DOCETAXEL
     Dates: start: 20190506, end: 20190506
  2. GEMCITABINE. [Suspect]
     Active Substance: GEMCITABINE
     Indication: UTERINE LEIOMYOSARCOMA
     Dosage: ?          OTHER FREQUENCY:DAY 1 + 8 Q21 DAYS;?
     Route: 041
     Dates: start: 20190429, end: 20190506

REACTIONS (1)
  - Aortitis [None]

NARRATIVE: CASE EVENT DATE: 20190517
